FAERS Safety Report 10213394 (Version 2)
Quarter: 2014Q3

REPORT INFORMATION
  Report Type: Spontaneous
  Country: US (occurrence: None)
  Receive Date: 20140529
  Receipt Date: 20140724
  Transmission Date: 20150326
  Serious: Yes (Other)
  Sender: FDA-Public Use
  Company Number: 2014AP003136

PATIENT
  Age: 39 Year
  Sex: Female
  Weight: 54.4 kg

DRUGS (2)
  1. PAXIL CR [Suspect]
     Active Substance: PAROXETINE HYDROCHLORIDE
     Indication: PRODUCT USED FOR UNKNOWN INDICATION
  2. LEVOXYL (LEVOTHYROXINE SODIUM) [Concomitant]

REACTIONS (2)
  - Uterine leiomyoma [None]
  - Premature menopause [None]

NARRATIVE: CASE EVENT DATE: 2002
